FAERS Safety Report 12372706 (Version 4)
Quarter: 2016Q2

REPORT INFORMATION
  Report Type: Report from Study
  Country: GR (occurrence: GR)
  Receive Date: 20160516
  Receipt Date: 20160603
  Transmission Date: 20160815
  Serious: Yes (Hospitalization)
  Sender: FDA-Public Use
  Company Number: GR-ABBVIE-16P-066-1624274-00

PATIENT
  Age: 79 Year
  Sex: Female
  Weight: 70 kg

DRUGS (9)
  1. MADOPAR [Concomitant]
     Active Substance: BENSERAZIDE HYDROCHLORIDE\LEVODOPA
     Indication: PARKINSON^S DISEASE
     Dosage: 5*100MG
     Route: 048
     Dates: start: 20160524
  2. DUODOPA [Suspect]
     Active Substance: CARBIDOPA\LEVODOPA
     Dosage: MD: 17ML, CD: 4ML/H, ED: 1.8ML
     Route: 050
     Dates: start: 20160511, end: 20160516
  3. CIPROXIN [Concomitant]
     Active Substance: CIPROFLOXACIN
     Indication: URINARY TRACT INFECTION
     Route: 048
     Dates: start: 20160413, end: 20160504
  4. DUODOPA [Suspect]
     Active Substance: CARBIDOPA\LEVODOPA
     Indication: PARKINSON^S DISEASE
     Dosage: MD: 17ML, CD: 5ML/H, ED: 1.8ML
     Route: 050
     Dates: start: 20160209, end: 20160524
  5. DUODOPA [Suspect]
     Active Substance: CARBIDOPA\LEVODOPA
     Dosage: MD: 17 ML, CD: 5 ML/H, ED: 1.8 ML
     Route: 050
  6. DUODOPA [Suspect]
     Active Substance: CARBIDOPA\LEVODOPA
     Dosage: MD: 17 ML, CD: 3.5 ML/H, ED: 1.8 ML
     Route: 050
     Dates: end: 20160523
  7. DUODOPA [Suspect]
     Active Substance: CARBIDOPA\LEVODOPA
     Dosage: MD: 17ML, CD: 4ML/H, ED: 1.8ML
     Route: 050
     Dates: start: 20160516
  8. DUODOPA [Suspect]
     Active Substance: CARBIDOPA\LEVODOPA
     Dosage: MD: 12 ML, CD: 3.5 ML/H, ED: 1.8 ML
     Route: 050
     Dates: start: 20160523, end: 20160524
  9. ZYVOXID [Concomitant]
     Active Substance: LINEZOLID
     Indication: STAPHYLOCOCCAL INFECTION
     Route: 048
     Dates: start: 20160421, end: 20160510

REACTIONS (10)
  - Haematemesis [Recovered/Resolved]
  - Vomiting [Not Recovered/Not Resolved]
  - Haematocrit decreased [Unknown]
  - Oesophagitis [Unknown]
  - Hypokalaemia [Not Recovered/Not Resolved]
  - Weight decreased [Unknown]
  - C-reactive protein increased [Unknown]
  - Retching [Not Recovered/Not Resolved]
  - Cystitis klebsiella [Not Recovered/Not Resolved]
  - Hyponatraemia [Not Recovered/Not Resolved]

NARRATIVE: CASE EVENT DATE: 20160430
